FAERS Safety Report 21743290 (Version 3)
Quarter: 2024Q2

REPORT INFORMATION
  Report Type: Report from Study
  Country: EG (occurrence: EG)
  Receive Date: 20221217
  Receipt Date: 20240517
  Transmission Date: 20240716
  Serious: Yes (Other)
  Sender: FDA-Public Use
  Company Number: EG-002147023-NVSC2022EG290329

PATIENT
  Age: 26 Year
  Sex: Male

DRUGS (7)
  1. GILENYA [Suspect]
     Active Substance: FINGOLIMOD HYDROCHLORIDE
     Indication: Multiple sclerosis
     Dosage: 1 DOSAGE FORM, QD
     Route: 048
     Dates: start: 20211122, end: 20220828
  2. GILENYA [Suspect]
     Active Substance: FINGOLIMOD HYDROCHLORIDE
     Dosage: UNK, QOD
     Route: 048
     Dates: start: 20220828, end: 20220830
  3. AUGMENTIN [Concomitant]
     Active Substance: AMOXICILLIN\CLAVULANATE POTASSIUM
     Indication: Aspiration pleural cavity
     Dosage: UNK UNK, BID (HE STOPPED IT AFTER A WEEK OR TEN DAYS FROM  THE ADMINSTERATION)
     Route: 048
     Dates: start: 202210
  4. FORADIL [Concomitant]
     Active Substance: FORMOTEROL FUMARATE
     Indication: Aspiration pleural cavity
     Dosage: UNK
     Route: 048
     Dates: start: 202210
  5. BUDESONIDE [Concomitant]
     Active Substance: BUDESONIDE
     Indication: Aspiration pleural cavity
     Dosage: ONCE OR TWICE DAILY
     Route: 065
     Dates: start: 202210
  6. CONTROLOC [Concomitant]
     Active Substance: PANTOPRAZOLE SODIUM
     Indication: Abdominal discomfort
     Dosage: UNK, QD (STARTED TWO OR THREE YEARS AGO)
     Route: 048
  7. PANADOL [Concomitant]
     Active Substance: ACETAMINOPHEN
     Indication: Headache
     Dosage: UNK, PRN
     Route: 048
     Dates: start: 20221115

REACTIONS (11)
  - Pulmonary oedema [Recovering/Resolving]
  - Pulmonary congestion [Recovering/Resolving]
  - Obstructive airways disorder [Recovering/Resolving]
  - Chest pain [Recovering/Resolving]
  - Bradycardia [Recovered/Resolved]
  - Nasopharyngitis [Recovering/Resolving]
  - Oropharyngeal pain [Recovered/Resolved]
  - Pyrexia [Recovering/Resolving]
  - Alopecia [Not Recovered/Not Resolved]
  - Product dose omission in error [Unknown]
  - Intentional product use issue [Recovered/Resolved]

NARRATIVE: CASE EVENT DATE: 20220801
